FAERS Safety Report 7701142-5 (Version None)
Quarter: 2011Q3

REPORT INFORMATION
  Report Type: 
  Country: None (occurrence: None)
  Receive Date: 20110822
  Receipt Date: 20110819
  Transmission Date: 20111222
  Serious: Yes (Other)
  Sender: FDA-Public Use
  Company Number: US-TEVA-297162USA

PATIENT
  Sex: Female

DRUGS (2)
  1. PRAVASTATIN [Suspect]
     Indication: BLOOD CHOLESTEROL INCREASED
     Dosage: 20 MILLIGRAM;
     Route: 048
     Dates: start: 20090901
  2. HYDROCHLOROTHIAZIDE [Concomitant]
     Indication: HYPERTENSION

REACTIONS (5)
  - MYASTHENIA GRAVIS [None]
  - MALAISE [None]
  - MUSCULAR WEAKNESS [None]
  - FOREIGN BODY SENSATION IN EYES [None]
  - DIPLOPIA [None]
